FAERS Safety Report 9625369 (Version 1)
Quarter: 2013Q4

REPORT INFORMATION
  Report Type: Spontaneous
  Country: US (occurrence: US)
  Receive Date: 20131016
  Receipt Date: 20131016
  Transmission Date: 20140711
  Serious: No
  Sender: FDA-Public Use
  Company Number: US-PFIZER INC-2013293053

PATIENT
  Sex: Female

DRUGS (2)
  1. REVATIO [Suspect]
     Indication: PULMONARY ARTERIAL HYPERTENSION
     Dosage: UNK
     Route: 048
  2. REVATIO [Suspect]
     Dosage: 100 MG, 4X/DAY
     Route: 048
     Dates: start: 20120312

REACTIONS (2)
  - Off label use [Not Recovered/Not Resolved]
  - Drug ineffective [Unknown]
